FAERS Safety Report 8956273 (Version 1)
Quarter: 2012Q4

REPORT INFORMATION
  Report Type: 
  Country: US (occurrence: US)
  Receive Date: 20121210
  Receipt Date: 20121210
  Transmission Date: 20130627
  Serious: Yes (Hospitalization)
  Sender: FDA-Public Use
  Company Number: US-JNJFOC-2005156322

PATIENT
  Age: 39 Year
  Sex: Female

DRUGS (17)
  1. FELDENE [Suspect]
     Indication: PAIN
     Dosage: Frequency Text: UNKNOWN Daily Dose Text: UNKNOWN
     Route: 065
     Dates: end: 20050916
  2. MOTRIN [Interacting]
     Indication: PAIN
     Dosage: Frequency Text: UNKNOWN Daily Dose Text: UNKNOWN
     Route: 065
     Dates: end: 20050916
  3. MOTRIN [Interacting]
     Indication: PAIN
     Dosage: Frequency Text: UNKNOWN Daily Dose Text: UNKNOWN
     Route: 065
     Dates: end: 20050916
  4. ALL OTHER THERAPEUTIC PRODUCTS [Concomitant]
     Route: 065
     Dates: start: 20050217, end: 20050912
  5. SPIRONOLACTONE [Concomitant]
     Route: 065
  6. PRINIVIL [Concomitant]
     Route: 065
  7. PRILOSEC [Concomitant]
     Route: 065
  8. SINEMET [Concomitant]
     Route: 065
  9. ALBUTEROL [Concomitant]
     Route: 065
  10. CLOBETASOL PROPIONATE [Concomitant]
     Route: 065
  11. NITROGLYCERIN [Concomitant]
     Route: 065
  12. TYLENOL [Concomitant]
     Route: 065
  13. PREDNISONE [Concomitant]
     Route: 065
  14. OPCON A [Concomitant]
     Route: 065
  15. ESTRADIOL [Concomitant]
     Route: 065
  16. PROVERA [Concomitant]
     Route: 065
  17. LEVOTHROID [Concomitant]
     Route: 065

REACTIONS (2)
  - Colitis ischaemic [Recovered/Resolved]
  - Drug interaction [Recovered/Resolved]
